FAERS Safety Report 11086921 (Version 1)
Quarter: 2015Q2

REPORT INFORMATION
  Report Type: Spontaneous
  Country: US (occurrence: None)
  Receive Date: 20150430
  Receipt Date: 20150430
  Transmission Date: 20150821
  Serious: Yes (Death, Life-Threatening, Other)
  Sender: FDA-Public Use
  Company Number: FK201501935

PATIENT
  Age: 64 Year
  Sex: Male

DRUGS (8)
  1. VANCOMYCIN [Concomitant]
     Active Substance: VANCOMYCIN
  2. METHYLPREDNISOLONE (MANUFACTURER UNKNOWN) (METHYLPREDNISOLONE SODIUM SUCCINATE) (METHYLPREDNISOLONE SODIUM SUCCINATE) [Suspect]
     Active Substance: METHYLPREDNISOLONE
     Indication: IMMUNOSUPPRESSANT DRUG THERAPY
  3. TACROLIMUS (TACROLIMUS) [Suspect]
     Active Substance: TACROLIMUS
     Indication: IMMUNOSUPPRESSANT DRUG THERAPY
  4. ACICLOVIR [Concomitant]
     Active Substance: ACYCLOVIR
  5. PIPERACILLIN AND TAZOBACTAM [Concomitant]
     Active Substance: PIPERACILLIN SODIUM\TAZOBACTAM SODIUM
  6. AZATHIOPRINE (AZATHIOPRINE) [Suspect]
     Active Substance: AZATHIOPRINE
     Indication: IMMUNOSUPPRESSANT DRUG THERAPY
  7. BASILIXIMAB [Concomitant]
     Active Substance: BASILIXIMAB
  8. VORICONAZOLE. [Concomitant]
     Active Substance: VORICONAZOLE

REACTIONS (12)
  - Circulatory collapse [None]
  - Encephalitis [None]
  - Multi-organ failure [None]
  - Bronchopulmonary aspergillosis [None]
  - Herpes simplex hepatitis [None]
  - Cerebral aspergillosis [None]
  - Postoperative renal failure [None]
  - Renal failure [None]
  - General physical health deterioration [None]
  - Hepatic failure [None]
  - Disseminated intravascular coagulation [None]
  - Encephalopathy [None]
